FAERS Safety Report 5678398-6 (Version None)
Quarter: 2008Q1

REPORT INFORMATION
  Report Type: 
  Country: None (occurrence: None)
  Receive Date: 20080321
  Receipt Date: 20080313
  Transmission Date: 20080703
  Serious: Yes (Other)
  Sender: FDA-Public Use
  Company Number: WAES 0711USA00686

PATIENT
  Age: 60 Year
  Sex: Female

DRUGS (1)
  1. FOSAMAX [Suspect]
     Indication: OSTEOPOROSIS
     Dosage: 1 2.5 MG/DAILY/PO
     Route: 048
     Dates: start: 19930617, end: 19970612

REACTIONS (51)
  - ABSCESS [None]
  - AMALGAM TATTOO [None]
  - AMNESIA [None]
  - APICAL GRANULOMA [None]
  - BONE DENSITY DECREASED [None]
  - BONE MARROW ISCHAEMIA [None]
  - BONE MARROW OEDEMA [None]
  - BURNING SENSATION [None]
  - CELLULITIS [None]
  - CHRONIC SINUSITIS [None]
  - DEMENTIA [None]
  - DENTAL CARIES [None]
  - EDENTULOUS [None]
  - FALL [None]
  - GINGIVAL DISORDER [None]
  - GINGIVITIS [None]
  - GRANULOMA [None]
  - INFLAMMATION [None]
  - INJURY [None]
  - ISCHAEMIA [None]
  - JAW DISORDER [None]
  - MENTAL DISORDER [None]
  - NEOPLASM [None]
  - ORAL DISORDER [None]
  - ORAL INFECTION [None]
  - OSTEOMYELITIS [None]
  - OSTEOMYELITIS CHRONIC [None]
  - OSTEONECROSIS [None]
  - OSTEOPOROSIS [None]
  - PAIN [None]
  - PARAESTHESIA [None]
  - PERIODONTAL DISEASE [None]
  - PERIODONTITIS [None]
  - POST PROCEDURAL INFECTION [None]
  - RHINITIS [None]
  - SINUS DISORDER [None]
  - SOFT TISSUE INFECTION [None]
  - SWELLING [None]
  - SWELLING FACE [None]
  - TEMPOROMANDIBULAR JOINT SYNDROME [None]
  - THERAPEUTIC RESPONSE UNEXPECTED [None]
  - THROMBOSIS [None]
  - TOOTH ABSCESS [None]
  - TOOTH DISORDER [None]
  - TOOTH FRACTURE [None]
  - TOOTH IMPACTED [None]
  - TOOTH INFECTION [None]
  - TOOTH LOSS [None]
  - TOOTHACHE [None]
  - TREATMENT FAILURE [None]
  - WRIST FRACTURE [None]
